FAERS Safety Report 9121149 (Version 1)
Quarter: 2013Q1

REPORT INFORMATION
  Report Type: Report from Study
  Country: US (occurrence: US)
  Receive Date: 20130226
  Receipt Date: 20130226
  Transmission Date: 20140127
  Serious: Yes (Hospitalization, Other)
  Sender: FDA-Public Use
  Company Number: US-GENZYME-MOZO-1000821

PATIENT
  Age: 53 Year
  Sex: Male

DRUGS (10)
  1. MOZOBIL [Suspect]
     Indication: HAEMATOPOIETIC STEM CELL MOBILISATION
     Dosage: UNK
     Route: 065
     Dates: start: 20121217
  2. MOZOBIL [Suspect]
     Dosage: UNK
     Route: 065
     Dates: start: 20121219
  3. LENALIDOMIDE [Suspect]
     Indication: HAEMATOPOIETIC STEM CELL MOBILISATION
     Dosage: UNK
     Route: 065
     Dates: start: 20121119
  4. IBUPROFEN [Concomitant]
     Indication: MUSCULOSKELETAL PAIN
     Dosage: UNK
     Route: 065
  5. IBUPROFEN [Concomitant]
     Indication: NECK PAIN
  6. TYLENOL [Concomitant]
     Indication: MUSCULOSKELETAL PAIN
     Dosage: UNK
     Route: 065
  7. TYLENOL [Concomitant]
     Indication: NECK PAIN
  8. FENTANYL [Concomitant]
     Indication: MECHANICAL VENTILATION
     Dosage: UNK
     Route: 065
     Dates: start: 20130215
  9. PROPOFOL [Concomitant]
     Indication: MECHANICAL VENTILATION
     Dosage: UNK
     Route: 065
     Dates: start: 20130215
  10. NOREPINEPHRINE [Suspect]
     Indication: RESPIRATORY FAILURE
     Dosage: UNK
     Route: 065
     Dates: start: 20130215

REACTIONS (8)
  - Respiratory failure [Not Recovered/Not Resolved]
  - General physical health deterioration [Not Recovered/Not Resolved]
  - Influenza [Not Recovered/Not Resolved]
  - Oedema peripheral [Unknown]
  - Poor quality sleep [Unknown]
  - Clostridial infection [Unknown]
  - Chronic lymphocytic leukaemia [Unknown]
  - Dyspnoea [Not Recovered/Not Resolved]
